FAERS Safety Report 13226699 (Version 2)
Quarter: 2020Q3

REPORT INFORMATION
  Report Type: Report from Study
  Country: IT (occurrence: IT)
  Receive Date: 20170213
  Receipt Date: 20170216
  Transmission Date: 20201104
  Serious: Yes (Hospitalization)
  Sender: FDA-Public Use
  Company Number: IT-JNJFOC-20170206020

PATIENT
  Age: 69 Year
  Sex: Female

DRUGS (7)
  1. PEGYLATED DOXORUBICIN HYDROCHLORIDE [Suspect]
     Active Substance: DOXORUBICIN HYDROCHLORIDE
     Indication: OVARIAN CANCER
     Dosage: CYCLE 3, INTENDED DOSE: 30.00 (UNITS NOT PROVIDED) AND ADMINISTERED DOSE: 25.00 (UNITS NOT PROVIDED)
     Route: 042
     Dates: start: 20161128
  2. TRABECTEDIN [Suspect]
     Active Substance: TRABECTEDIN
     Route: 042
  3. POTASSIUM CHLORIDE. [Concomitant]
     Active Substance: POTASSIUM CHLORIDE
     Indication: MINERAL SUPPLEMENTATION
     Dosage: 1500 (UNITS NOT PROVIDED).
     Route: 048
     Dates: start: 20170124, end: 20170130
  4. PREDNISOLONE. [Concomitant]
     Active Substance: PREDNISOLONE
     Indication: MALAISE
     Dosage: 25 (UNITS NOT PROVIDED).
     Route: 048
     Dates: start: 20170124, end: 20170130
  5. TRABECTEDIN [Suspect]
     Active Substance: TRABECTEDIN
     Indication: OVARIAN CANCER
     Dosage: CYCLE 3, INTENDED DOSE: 1.10 (UNITS NOT PROVIDED) AND ADMINISTERED DOSE: 9.0 (UNITS NOT PROVIDED)
     Route: 042
     Dates: start: 20161128
  6. PEGYLATED DOXORUBICIN HYDROCHLORIDE [Suspect]
     Active Substance: DOXORUBICIN HYDROCHLORIDE
     Route: 042
  7. PANTOPRAZOLE [Concomitant]
     Active Substance: PANTOPRAZOLE
     Indication: HYPERCHLORHYDRIA
     Route: 048
     Dates: start: 20161115, end: 20170130

REACTIONS (1)
  - Ileus [Recovered/Resolved]

NARRATIVE: CASE EVENT DATE: 20170130
